FAERS Safety Report 8181779-2 (Version None)
Quarter: 2012Q1

REPORT INFORMATION
  Report Type: 
  Country: None (occurrence: None)
  Receive Date: 20120302
  Receipt Date: 20111130
  Transmission Date: 20120608
  Serious: No
  Sender: FDA-Public Use
  Company Number: US-AMGEN-USASP2011063538

PATIENT
  Sex: Male

DRUGS (1)
  1. NPLATE [Suspect]
     Indication: AUTOIMMUNE THROMBOCYTOPENIA
     Dosage: UNK

REACTIONS (2)
  - PLATELET COUNT DECREASED [None]
  - NEUROPATHY PERIPHERAL [None]
